FAERS Safety Report 9282460 (Version 1)
Quarter: 2013Q2

REPORT INFORMATION
  Report Type: Spontaneous
  Country: US (occurrence: US)
  Receive Date: 20130510
  Receipt Date: 20130510
  Transmission Date: 20140414
  Serious: Yes (Other)
  Sender: FDA-Public Use
  Company Number: US-PFIZER INC-2013142875

PATIENT
  Sex: Female

DRUGS (2)
  1. ADVIL [Suspect]
     Indication: PAIN
     Dosage: UNK
  2. CORTISONE [Suspect]
     Indication: PAIN
     Dosage: UNK

REACTIONS (2)
  - Suicidal ideation [Unknown]
  - Drug ineffective [Unknown]
